FAERS Safety Report 4594736-X (Version None)
Quarter: 2005Q1

REPORT INFORMATION
  Report Type: 
  Country: None (occurrence: None)
  Receive Date: 20050223
  Receipt Date: 20050201
  Transmission Date: 20050727
  Serious: Yes (Hospitalization)
  Sender: FDA-Public Use
  Company Number: 2005-00428

PATIENT
  Age: 52 Year
  Sex: Female

DRUGS (1)
  1. TRIAMCINOLONE ACETONIDE [Suspect]
     Indication: SCLERODERMA
     Dosage: USE ON AFECTED AREA BID, TOPICAL
     Route: 061
     Dates: start: 20030301, end: 20030601

REACTIONS (1)
  - SCLERODERMA RENAL CRISIS [None]
